FAERS Safety Report 4295880-7 (Version None)
Quarter: 2004Q1

REPORT INFORMATION
  Report Type: 
  Country: None (occurrence: None)
  Receive Date: 20040216
  Receipt Date: 20031126
  Transmission Date: 20041129
  Serious: Yes (Life-Threatening, Hospitalization, Other)
  Sender: FDA-Public Use
  Company Number: US-GLAXOSMITHKLINE-A0441176A

PATIENT
  Age: 3 Year
  Sex: Male

DRUGS (3)
  1. LAMICTAL [Suspect]
     Indication: TUBEROUS SCLEROSIS
     Route: 048
     Dates: start: 20030101
  2. PHENOBARBITAL TAB [Concomitant]
  3. ACTH [Concomitant]

REACTIONS (7)
  - DEPRESSED LEVEL OF CONSCIOUSNESS [None]
  - HEPATIC ENZYME INCREASED [None]
  - HEPATIC FAILURE [None]
  - INFLUENZA [None]
  - RENAL FAILURE [None]
  - SOMNOLENCE [None]
  - VOMITING [None]
